FAERS Safety Report 7270668-3 (Version None)
Quarter: 2011Q1

REPORT INFORMATION
  Report Type: 
  Country: None (occurrence: None)
  Receive Date: 20110202
  Receipt Date: 20110126
  Transmission Date: 20110831
  Serious: Yes (Hospitalization, Congenital Anomaly)
  Sender: FDA-Public Use
  Company Number: A0911198A

PATIENT
  Sex: Male
  Weight: 3.9 kg

DRUGS (2)
  1. KLONOPIN [Concomitant]
     Indication: BIPOLAR DISORDER
  2. PAXIL [Suspect]
     Indication: BIPOLAR DISORDER
     Route: 064

REACTIONS (2)
  - DRUG EXPOSURE DURING PREGNANCY [None]
  - CONGENITAL PULMONARY HYPERTENSION [None]
